FAERS Safety Report 5014602-5 (Version None)
Quarter: 2006Q2

REPORT INFORMATION
  Report Type: 
  Country: None (occurrence: None)
  Receive Date: 20060523
  Receipt Date: 20060509
  Transmission Date: 20061013
  Serious: Yes (Other)
  Sender: FDA-Public Use
  Company Number: 2006BH009507

PATIENT
  Age: 52 Year
  Sex: Female
  Weight: 146.5118 kg

DRUGS (9)
  1. GAMMAGARD LIQUID [Suspect]
     Indication: MYASTHENIA GRAVIS
     Dosage: 68 GM;EVERY MO;IV
     Route: 042
     Dates: start: 20060509
  2. ALBUTEROL SULFATE AUTOHALER [Concomitant]
  3. ECHINACEA [Concomitant]
  4. HERBAL MEDICATIONS [Concomitant]
  5. MOTRIN IB [Concomitant]
  6. ASCORBIC ACID [Concomitant]
  7. COMBIVENT [Concomitant]
  8. ADVAIR DISKUS 100/50 [Concomitant]
  9. FLONASE [Concomitant]

REACTIONS (2)
  - HEART RATE INCREASED [None]
  - MYASTHENIA GRAVIS CRISIS [None]
